FAERS Safety Report 6967211-2 (Version None)
Quarter: 2010Q3

REPORT INFORMATION
  Report Type: 
  Country: None (occurrence: None)
  Receive Date: 20100907
  Receipt Date: 20100824
  Transmission Date: 20110219
  Serious: Yes (Other)
  Sender: FDA-Public Use
  Company Number: CA-ELI_LILLY_AND_COMPANY-CA201005004206

PATIENT
  Sex: Female

DRUGS (13)
  1. FORTEO [Suspect]
     Indication: OSTEOPOROSIS
     Dosage: 20 UG, DAILY (1/D)
     Dates: start: 20100323, end: 20100514
  2. AMLODIPINE [Concomitant]
     Dosage: 5 MG, DAILY (1/D)
  3. OXAZEPAM [Concomitant]
     Dosage: UNK, EACH EVENING
  4. PREDNISONE [Concomitant]
     Dosage: 1 MG, DAILY (1/D)
  5. TYLENOL ARTHRITIS EXTENDED RELIEF [Concomitant]
     Dosage: 650 MG, 3/D
  6. ATENOLOL [Concomitant]
     Dosage: UNK, DAILY (1/D)
  7. DIOVAN [Concomitant]
     Dosage: 80 MG, DAILY (1/D)
  8. ENTROPHEN [Concomitant]
     Dosage: UNK, DAILY (1/D)
  9. METHOTREXATE [Concomitant]
     Dosage: UNK, WEEKLY (1/W)
     Route: 058
  10. RATIO-VENLAFAXINE [Concomitant]
     Dosage: 225 MG, DAILY (1/D)
  11. APO-LORAZEPAM [Concomitant]
     Dosage: 0.5 MG, AS NEEDED
  12. OXYCODONE AND ACETAMINOPHEN [Concomitant]
     Dosage: UNK, AS NEEDED
  13. KOFFEX [Concomitant]
     Indication: COUGH
     Dosage: 10 ML, AS NEEDED

REACTIONS (4)
  - ARTHRALGIA [None]
  - ASTHENIA [None]
  - FALL [None]
  - FEMUR FRACTURE [None]
